FAERS Safety Report 5124544-2 (Version None)
Quarter: 2006Q3

REPORT INFORMATION
  Report Type: 
  Country: None (occurrence: None)
  Receive Date: 20060821
  Receipt Date: 20060607
  Transmission Date: 20061208
  Serious: No
  Sender: FDA-Public Use
  Company Number: TPA2006A00958

PATIENT
  Age: 64 Year
  Sex: Male
  Weight: 135.1719 kg

DRUGS (1)
  1. ROZEREM [Suspect]
     Indication: INITIAL INSOMNIA
     Dosage: 8 MG, QHS, PER ORAL
     Route: 048
     Dates: start: 20060501, end: 20060606

REACTIONS (5)
  - DRUG EFFECT DECREASED [None]
  - PRURITUS [None]
  - RASH [None]
  - SLEEP PHASE RHYTHM DISTURBANCE [None]
  - URTICARIA [None]
